FAERS Safety Report 24536060 (Version 1)
Quarter: 2024Q4

REPORT INFORMATION
  Report Type: Report from Study
  Country: US (occurrence: US)
  Receive Date: 20241022
  Receipt Date: 20241022
  Transmission Date: 20250115
  Serious: Yes (Other)
  Sender: JAZZ
  Company Number: US-JAZZ PHARMACEUTICALS-2024-US-007628

PATIENT
  Sex: Female

DRUGS (11)
  1. XYWAV [Suspect]
     Active Substance: CALCIUM OXYBATE\MAGNESIUM OXYBATE\POTASSIUM OXYBATE\SODIUM OXYBATE
     Indication: Hypersomnia
     Dosage: UNK
  2. XYWAV [Suspect]
     Active Substance: CALCIUM OXYBATE\MAGNESIUM OXYBATE\POTASSIUM OXYBATE\SODIUM OXYBATE
     Dosage: 3.75 GRAM, QD
     Route: 048
  3. XYWAV [Suspect]
     Active Substance: CALCIUM OXYBATE\MAGNESIUM OXYBATE\POTASSIUM OXYBATE\SODIUM OXYBATE
     Dosage: 3 GRAM, QD
  4. XYWAV [Suspect]
     Active Substance: CALCIUM OXYBATE\MAGNESIUM OXYBATE\POTASSIUM OXYBATE\SODIUM OXYBATE
     Dosage: UNK
  5. XYWAV [Suspect]
     Active Substance: CALCIUM OXYBATE\MAGNESIUM OXYBATE\POTASSIUM OXYBATE\SODIUM OXYBATE
     Dosage: 4.5 GRAM, QD
     Route: 048
     Dates: start: 20240503
  6. XYWAV [Suspect]
     Active Substance: CALCIUM OXYBATE\MAGNESIUM OXYBATE\POTASSIUM OXYBATE\SODIUM OXYBATE
     Dosage: 6 GRAM, AT BEDTIME
     Dates: start: 20240826, end: 20240826
  7. XYWAV [Suspect]
     Active Substance: CALCIUM OXYBATE\MAGNESIUM OXYBATE\POTASSIUM OXYBATE\SODIUM OXYBATE
     Dosage: 4.5 GRAM, QD
     Dates: start: 20240827
  8. LITHIUM CARBONATE [Concomitant]
     Active Substance: LITHIUM CARBONATE
     Indication: Product used for unknown indication
     Dosage: UNK
     Dates: start: 20240613
  9. ORILISSA [Concomitant]
     Active Substance: ELAGOLIX SODIUM
     Indication: Product used for unknown indication
     Dosage: 150 MILLIGRAM, QD
     Dates: start: 20240719
  10. ORILISSA [Concomitant]
     Active Substance: ELAGOLIX SODIUM
     Dosage: 150 MILLIGRAM, QD
     Dates: start: 20240719
  11. IPRATROPIUM [Concomitant]
     Active Substance: IPRATROPIUM
     Indication: Product used for unknown indication
     Dosage: UNK
     Dates: start: 20230901

REACTIONS (9)
  - Hallucination, olfactory [Recovered/Resolved]
  - Dysarthria [Recovered/Resolved]
  - Peripheral coldness [Recovering/Resolving]
  - Feeling hot [Recovering/Resolving]
  - Headache [Recovered/Resolved]
  - Parasomnia [Recovered/Resolved]
  - Product dose omission issue [Unknown]
  - Wrong dose [Unknown]
  - Drug effect less than expected [Not Recovered/Not Resolved]

NARRATIVE: CASE EVENT DATE: 20240101
